FAERS Safety Report 9561596 (Version 1)
Quarter: 2013Q3

REPORT INFORMATION
  Report Type: Spontaneous
  Country: CA (occurrence: None)
  Receive Date: 20130925
  Receipt Date: 20130925
  Transmission Date: 20140515
  Serious: Yes (Hospitalization)
  Sender: FDA-Public Use
  Company Number: DSU-2013-04569

PATIENT
  Age: 64 Year
  Sex: Male
  Weight: 95 kg

DRUGS (5)
  1. OLMETEC [Suspect]
     Indication: PRODUCT USED FOR UNKNOWN INDICATION
     Dosage: 40 MG (40 MG, QD), PER ORAL
     Route: 048
  2. ALLOPURINOL (ALLOPURINOL) (ALLOPURINOL) [Concomitant]
  3. CITALOPRAM (CITALOPRAM) (CITALOPRAM) [Concomitant]
  4. INSULIN (INSULIN) (INSULIN) [Concomitant]
  5. ROSUVASTATIN (ROSUVASTATIN) (ROSUVASTATIN) [Concomitant]

REACTIONS (9)
  - Culture stool positive [None]
  - Dehydration [None]
  - Diarrhoea [None]
  - Gastroenteritis cryptosporidial [None]
  - Gastrointestinal disorder [None]
  - Giardiasis [None]
  - Hypophagia [None]
  - Renal failure acute [None]
  - Weight decreased [None]
